FAERS Safety Report 19306197 (Version 1)
Quarter: 2021Q2

REPORT INFORMATION
  Report Type: Spontaneous
  Country: US (occurrence: US)
  Receive Date: 20210525
  Receipt Date: 20210525
  Transmission Date: 20210717
  Serious: Yes (Hospitalization)
  Sender: FDA-Public Use
  Company Number: None

PATIENT
  Age: 48 Year
  Sex: Male
  Weight: 96.1 kg

DRUGS (2)
  1. CASIRIVIMAB?IMDEVIMAB [Suspect]
     Active Substance: CASIRIVIMAB\IMDEVIMAB
     Indication: COVID-19
     Dosage: ?          OTHER FREQUENCY:ONCE;?
     Route: 041
     Dates: start: 20210518, end: 20210518
  2. CASIRIVIMAB?IMDEVIMAB [Concomitant]
     Active Substance: CASIRIVIMAB\IMDEVIMAB
     Dates: start: 20210518, end: 20210518

REACTIONS (11)
  - Dry mouth [None]
  - Pyrexia [None]
  - Dyspnoea exertional [None]
  - Gait disturbance [None]
  - Vomiting [None]
  - Asthenia [None]
  - Dehydration [None]
  - Chills [None]
  - Tremor [None]
  - Abdominal pain [None]
  - Headache [None]

NARRATIVE: CASE EVENT DATE: 20210518
